FAERS Safety Report 11048593 (Version 1)
Quarter: 2015Q2

REPORT INFORMATION
  Report Type: Spontaneous
  Country: US (occurrence: US)
  Receive Date: 20150420
  Receipt Date: 20150420
  Transmission Date: 20150821
  Serious: No
  Sender: FDA-Public Use
  Company Number: US-ASTRAZENECA-2015SE34823

PATIENT
  Sex: Female

DRUGS (1)
  1. NEXIUM [Suspect]
     Active Substance: ESOMEPRAZOLE MAGNESIUM
     Route: 048

REACTIONS (7)
  - Bacterial infection [Unknown]
  - Intentional product misuse [Unknown]
  - Asthenia [Unknown]
  - Cough [Unknown]
  - Wheezing [Unknown]
  - Malaise [Unknown]
  - Dyspnoea [Unknown]
